FAERS Safety Report 25549479 (Version 2)
Quarter: 2025Q3

REPORT INFORMATION
  Report Type: Spontaneous
  Country: US (occurrence: US)
  Receive Date: 20250714
  Receipt Date: 20250725
  Transmission Date: 20251020
  Serious: No
  Sender: KARYOPHARM THERAPEUTICS
  Company Number: US-KARYOPHARM-2025KPT100485

PATIENT

DRUGS (19)
  1. SELINEXOR [Suspect]
     Active Substance: SELINEXOR
     Indication: Plasma cell myeloma refractory
     Route: 048
     Dates: start: 20250709
  2. SELINEXOR [Suspect]
     Active Substance: SELINEXOR
     Route: 048
     Dates: start: 202507
  3. ASPIRIN [Concomitant]
     Active Substance: ASPIRIN
  4. BUPRENORPHINE [Concomitant]
     Active Substance: BUPRENORPHINE
  5. DEXAMETHASONE [Concomitant]
     Active Substance: DEXAMETHASONE
  6. DIPHENHYDRAMINE [Concomitant]
     Active Substance: DIPHENHYDRAMINE
  7. FLUCONAZOLE [Concomitant]
     Active Substance: FLUCONAZOLE
  8. HEPARIN [Concomitant]
     Active Substance: HEPARIN SODIUM
  9. ACETAMINOPHEN\HYDROCODONE [Concomitant]
     Active Substance: ACETAMINOPHEN\HYDROCODONE
  10. LEVOTHYROXINE [Concomitant]
     Active Substance: LEVOTHYROXINE
  11. MONTELUKAST [Concomitant]
     Active Substance: MONTELUKAST
  12. ONDANSETRON [Concomitant]
     Active Substance: ONDANSETRON
  13. PALONOSETRON [Concomitant]
     Active Substance: PALONOSETRON
  14. PANTOPRAZOLE [Concomitant]
     Active Substance: PANTOPRAZOLE
  15. PROAIR HFA [Concomitant]
     Active Substance: ALBUTEROL SULFATE
  16. PROMETHAZINE [Concomitant]
     Active Substance: PROMETHAZINE HYDROCHLORIDE
  17. TESTOSTERONE [Concomitant]
     Active Substance: TESTOSTERONE
  18. TRAMADOL [Concomitant]
     Active Substance: TRAMADOL
  19. VALACYCLOVIR [Concomitant]
     Active Substance: VALACYCLOVIR HYDROCHLORIDE

REACTIONS (2)
  - Abdominal distension [Recovering/Resolving]
  - Fatigue [Recovering/Resolving]

NARRATIVE: CASE EVENT DATE: 20250701
